FAERS Safety Report 5021787-3 (Version None)
Quarter: 2006Q2

REPORT INFORMATION
  Report Type: 
  Country: None (occurrence: None)
  Receive Date: 20060605
  Receipt Date: 20060521
  Transmission Date: 20061013
  Serious: Yes (Other)
  Sender: FDA-Public Use
  Company Number: US-2006-012638

PATIENT
  Age: 42 Year
  Sex: Female

DRUGS (1)
  1. BETASERON [Suspect]
     Indication: MULTIPLE SCLEROSIS
     Dosage: TITRATED DOSES (2/4/6 MIU) SUBCUTANEOUS
     Route: 058
     Dates: start: 20060405, end: 20060516

REACTIONS (2)
  - DRUG HYPERSENSITIVITY [None]
  - LEUKOCYTOCLASTIC VASCULITIS [None]
